FAERS Safety Report 14160056 (Version 1)
Quarter: 2017Q4

REPORT INFORMATION
  Report Type: Spontaneous
  Country: FR (occurrence: FR)
  Receive Date: 20171106
  Receipt Date: 20171106
  Transmission Date: 20180321
  Serious: Yes (Life-Threatening, Hospitalization)
  Sender: FDA-Public Use
  Company Number: FR-BAXTER-2017BAX037168

PATIENT
  Age: 56 Year
  Sex: Male

DRUGS (7)
  1. IPRATROPIUM (BROMURE D^) [Suspect]
     Active Substance: IPRATROPIUM
     Indication: INDUCTION AND MAINTENANCE OF ANAESTHESIA
     Route: 051
     Dates: start: 20171017, end: 20171017
  2. PROPOFOL PANPHARMA 10 MG/ML EMULSION IN JECTABLE [Suspect]
     Active Substance: PROPOFOL
     Indication: INDUCTION AND MAINTENANCE OF ANAESTHESIA
     Route: 051
     Dates: start: 20171017, end: 20171017
  3. SUFENTANIL (CITRATE) [Suspect]
     Active Substance: SUFENTANIL CITRATE
     Indication: INDUCTION AND MAINTENANCE OF ANAESTHESIA
     Route: 042
     Dates: start: 20171017, end: 20171017
  4. KETAMINE [Suspect]
     Active Substance: KETAMINE
     Indication: INDUCTION AND MAINTENANCE OF ANAESTHESIA
     Route: 042
     Dates: start: 20171017, end: 20171017
  5. AUGMENTIN [Suspect]
     Active Substance: AMOXICILLIN\CLAVULANATE POTASSIUM
     Indication: ANTIBIOTIC PROPHYLAXIS
     Route: 042
     Dates: start: 20171017, end: 20171017
  6. AUGMENTIN [Concomitant]
     Active Substance: AMOXICILLIN\CLAVULANATE POTASSIUM
     Indication: TOOTH ABSCESS
     Route: 065
     Dates: start: 201709
  7. SUPRANE [Suspect]
     Active Substance: DESFLURANE
     Indication: INDUCTION OF ANAESTHESIA
     Route: 055
     Dates: start: 20171017, end: 20171017

REACTIONS (4)
  - Tachycardia [Recovered/Resolved]
  - Hypotension [Recovered/Resolved]
  - Bronchospasm [Recovered/Resolved]
  - Anaphylactic shock [Recovered/Resolved]

NARRATIVE: CASE EVENT DATE: 20171017
